FAERS Safety Report 7931495-4 (Version None)
Quarter: 2011Q4

REPORT INFORMATION
  Report Type: 
  Country: None (occurrence: None)
  Receive Date: 20111121
  Receipt Date: 20111121
  Transmission Date: 20120403
  Serious: Yes (Other)
  Sender: FDA-Public Use
  Company Number: None

PATIENT
  Age: 42 Year
  Sex: Female
  Weight: 45.359 kg

DRUGS (3)
  1. CITALOPRAM HYDROBROMIDE [Suspect]
     Indication: FATIGUE
     Dosage: 5 MG -1/2 TABLET-
     Route: 048
     Dates: start: 20111114, end: 20111117
  2. CITALOPRAM HYDROBROMIDE [Suspect]
     Indication: PAIN
     Dosage: 5 MG -1/2 TABLET-
     Route: 048
     Dates: start: 20111114, end: 20111117
  3. CITALOPRAM HYDROBROMIDE [Suspect]
     Indication: FIBROMYALGIA
     Dosage: 5 MG -1/2 TABLET-
     Route: 048
     Dates: start: 20111114, end: 20111117

REACTIONS (11)
  - FATIGUE [None]
  - RESTLESSNESS [None]
  - INSOMNIA [None]
  - PAIN [None]
  - NAUSEA [None]
  - MUSCULAR WEAKNESS [None]
  - TREMOR [None]
  - RASH GENERALISED [None]
  - FEELING HOT [None]
  - SKIN DISCOLOURATION [None]
  - PARAESTHESIA [None]
